FAERS Safety Report 9478797 (Version 1)
Quarter: 2013Q3

REPORT INFORMATION
  Report Type: Spontaneous
  Country: US (occurrence: US)
  Receive Date: 20130827
  Receipt Date: 20130827
  Transmission Date: 20140515
  Serious: Yes (Other)
  Sender: FDA-Public Use
  Company Number: US-TEVA-428494USA

PATIENT
  Sex: Female
  Weight: 44.95 kg

DRUGS (1)
  1. PARAGARD 380A [Suspect]
     Indication: CONTRACEPTION
     Route: 015
     Dates: start: 20130124, end: 20130822

REACTIONS (3)
  - Device dislocation [Recovered/Resolved]
  - Haemorrhage [Unknown]
  - Pain [Unknown]
